FAERS Safety Report 7781341-7 (Version None)
Quarter: 2011Q3

REPORT INFORMATION
  Report Type: 
  Country: None (occurrence: None)
  Receive Date: 20110923
  Receipt Date: 20110922
  Transmission Date: 20111222
  Serious: Yes (Hospitalization)
  Sender: FDA-Public Use
  Company Number: SP04508

PATIENT
  Age: 55 Year
  Sex: Female

DRUGS (5)
  1. GENTAMICIN [Concomitant]
  2. SOTALOL HCL [Concomitant]
  3. AMOXICILLIN TRIHYDRATE [Concomitant]
  4. OSMOPREP [Suspect]
     Indication: BOWEL PREPARATION
     Dosage: 32 TABLETS, ORAL
     Route: 048
     Dates: start: 20110911, end: 20110912
  5. DIPRIVAN [Concomitant]

REACTIONS (6)
  - CONDITION AGGRAVATED [None]
  - VOMITING [None]
  - ECHOCARDIOGRAM ABNORMAL [None]
  - MALAISE [None]
  - CARDIAC FAILURE [None]
  - HYPOVOLAEMIC SHOCK [None]
